FAERS Safety Report 7932843-1 (Version None)
Quarter: 2011Q4

REPORT INFORMATION
  Report Type: 
  Country: None (occurrence: None)
  Receive Date: 20111122
  Receipt Date: 20111116
  Transmission Date: 20120403
  Serious: Yes (Other)
  Sender: FDA-Public Use
  Company Number: US-PFIZER INC-2011282194

PATIENT
  Sex: Female

DRUGS (1)
  1. VIAGRA [Suspect]
     Indication: INSOMNIA
     Dosage: 3 TIMES A WEEK

REACTIONS (3)
  - RASH GENERALISED [None]
  - FUNGAL SKIN INFECTION [None]
  - STAPHYLOCOCCAL SKIN INFECTION [None]
